FAERS Safety Report 4346442-4 (Version None)
Quarter: 2004Q2

REPORT INFORMATION
  Report Type: 
  Country: None (occurrence: None)
  Receive Date: 20040426
  Receipt Date: 20030203
  Transmission Date: 20050107
  Serious: No
  Sender: FDA-Public Use
  Company Number: US-BRISTOL-MYERS SQUIBB COMPANY-12175477

PATIENT
  Age: 59 Year
  Sex: Female
  Weight: 27 kg

DRUGS (5)
  1. CARBOPLATIN [Suspect]
     Indication: OVARIAN CANCER
     Dosage: 1ST DOSE ON 04SEP02
     Route: 042
     Dates: start: 20030109, end: 20030109
  2. DECADRON [Concomitant]
     Indication: PREMEDICATION
     Route: 042
     Dates: start: 20030109, end: 20030109
  3. BENADRYL [Concomitant]
     Indication: PREMEDICATION
     Route: 042
     Dates: start: 20030109, end: 20030109
  4. ZOFRAN [Concomitant]
     Indication: PREMEDICATION
     Route: 042
     Dates: start: 20030109, end: 20030109
  5. TAGAMET [Concomitant]
     Indication: PREMEDICATION
     Route: 042
     Dates: start: 20030109, end: 20030109

REACTIONS (5)
  - CHEST DISCOMFORT [None]
  - FLUSHING [None]
  - PRURITUS [None]
  - RASH GENERALISED [None]
  - TREMOR [None]
